FAERS Safety Report 16926258 (Version 5)
Quarter: 2020Q1

REPORT INFORMATION
  Report Type: Report from Study
  Country: IT (occurrence: IT)
  Receive Date: 20191016
  Receipt Date: 20200318
  Transmission Date: 20200409
  Serious: Yes (Other)
  Sender: FDA-Public Use
  Company Number: IT-CELGENEUS-ITA-20191002935

PATIENT
  Age: 55 Year
  Sex: Female
  Weight: 76 kg

DRUGS (2)
  1. ABRAXANE [Suspect]
     Active Substance: PACLITAXEL
     Indication: PANCREATIC NEOPLASM
     Dosage: 125 MILLIGRAM/SQ. METER
     Route: 041
     Dates: start: 20181010, end: 20181106
  2. GEMCITABINE. [Concomitant]
     Active Substance: GEMCITABINE
     Indication: PANCREATIC NEOPLASM
     Dosage: 1000 MILLIGRAM/SQ. METER
     Route: 041
     Dates: start: 20181010, end: 20181106

REACTIONS (6)
  - Somnolence [Recovered/Resolved]
  - Asthenia [Recovered/Resolved]
  - Palmar-plantar erythrodysaesthesia syndrome [Not Recovered/Not Resolved]
  - Thrombocytopenia [Recovered/Resolved]
  - Neuropathy peripheral [Not Recovered/Not Resolved]
  - Neurotoxicity [Not Recovered/Not Resolved]

NARRATIVE: CASE EVENT DATE: 20181017
